FAERS Safety Report 11107284 (Version 1)
Quarter: 2015Q2

REPORT INFORMATION
  Report Type: Spontaneous
  Country: US (occurrence: None)
  Receive Date: 20150511
  Receipt Date: 20150511
  Transmission Date: 20150821
  Serious: No
  Sender: FDA-Public Use
  Company Number: None

PATIENT
  Age: 48 Year
  Sex: Female

DRUGS (8)
  1. PYRIDOSTIGMINE [Concomitant]
     Active Substance: PYRIDOSTIGMINE
  2. OXYBUTYNIN [Concomitant]
     Active Substance: OXYBUTYNIN
  3. BACLOFEN. [Concomitant]
     Active Substance: BACLOFEN
  4. INSUPIN NP [Concomitant]
  5. METFORMIN [Concomitant]
     Active Substance: METFORMIN HYDROCHLORIDE
  6. AMPYRA [Suspect]
     Active Substance: DALFAMPRIDINE
     Indication: MULTIPLE SCLEROSIS
     Route: 048
     Dates: start: 201009
  7. RITUXIMAB [Concomitant]
     Active Substance: RITUXIMAB
  8. URSODIOL. [Concomitant]
     Active Substance: URSODIOL

REACTIONS (1)
  - Laboratory test abnormal [None]

NARRATIVE: CASE EVENT DATE: 20150501
